FAERS Safety Report 9381015 (Version 2)
Quarter: 2013Q3

REPORT INFORMATION
  Report Type: Spontaneous
  Country: US (occurrence: US)
  Receive Date: 20130703
  Receipt Date: 20130821
  Transmission Date: 20140515
  Serious: Yes (Other)
  Sender: FDA-Public Use
  Company Number: US-BRISTOL-MYERS SQUIBB COMPANY-19051937

PATIENT
  Age: 68 Year
  Sex: Male
  Weight: 90.7 kg

DRUGS (1)
  1. BYETTA [Suspect]
     Indication: TYPE 2 DIABETES MELLITUS
     Dosage: 8SEP08-29NOV08,30OCT08-10JAN12:10MG/2/DAY?04MAR09-25SEP09,28OCT09-18APR10:10MG/1/DAY
     Dates: start: 20080908

REACTIONS (3)
  - Pancreatic carcinoma [Unknown]
  - Diverticulitis [Unknown]
  - Gastric polyps [Unknown]
